FAERS Safety Report 16792393 (Version 4)
Quarter: 2021Q2

REPORT INFORMATION
  Report Type: Spontaneous
  Country: US (occurrence: US)
  Receive Date: 20190910
  Receipt Date: 20210624
  Transmission Date: 20210716
  Serious: Yes (Hospitalization, Other)
  Sender: FDA-Public Use
  Company Number: US-GLAXOSMITHKLINE-US2019GSK163154

PATIENT
  Age: 67 Year
  Sex: Male

DRUGS (9)
  1. NEXIUM [Suspect]
     Active Substance: ESOMEPRAZOLE MAGNESIUM
     Indication: PRODUCT USED FOR UNKNOWN INDICATION
     Dosage: 40 MG, QD
     Route: 048
     Dates: start: 20120515, end: 20121127
  2. NEXIUM 24HR [Suspect]
     Active Substance: ESOMEPRAZOLE MAGNESIUM
     Indication: PRODUCT USED FOR UNKNOWN INDICATION
     Dosage: UNK
     Route: 065
  3. PRILOSEC [Suspect]
     Active Substance: OMEPRAZOLE MAGNESIUM
     Indication: PRODUCT USED FOR UNKNOWN INDICATION
     Dosage: UNK
     Route: 065
  4. PRILOSEC OTC [Suspect]
     Active Substance: OMEPRAZOLE MAGNESIUM
     Indication: PRODUCT USED FOR UNKNOWN INDICATION
     Dosage: UNK
     Route: 065
  5. PREVACID [Suspect]
     Active Substance: LANSOPRAZOLE
     Indication: DYSPEPSIA
     Dosage: UNK
     Route: 065
  6. ESOMEPRAZOLE. [Suspect]
     Active Substance: ESOMEPRAZOLE MAGNESIUM
     Indication: PRODUCT USED FOR UNKNOWN INDICATION
     Dosage: 40 MG
     Route: 048
  7. PREVACID 24 HR [Suspect]
     Active Substance: LANSOPRAZOLE
     Indication: DYSPEPSIA
     Dosage: 40 MG, UNKNOWN
     Route: 048
  8. PANTOPRAZOLE                       /01263204/ [Suspect]
     Active Substance: PANTOPRAZOLE SODIUM
     Indication: DYSPEPSIA
     Dosage: 40 MG, UNKNOWN
     Route: 065
  9. PROTONIX [Suspect]
     Active Substance: PANTOPRAZOLE SODIUM
     Indication: PRODUCT USED FOR UNKNOWN INDICATION
     Dosage: UNK
     Route: 065

REACTIONS (16)
  - End stage renal disease [Unknown]
  - Hypertensive nephropathy [Unknown]
  - Renal failure [Not Recovered/Not Resolved]
  - Renal cyst [Unknown]
  - Renal injury [Unknown]
  - Nephrogenic anaemia [Unknown]
  - Proteinuria [Unknown]
  - Cardiac failure [Unknown]
  - Device dependence [Unknown]
  - Diabetic nephropathy [Unknown]
  - Chronic kidney disease [Unknown]
  - Renal impairment [Not Recovered/Not Resolved]
  - Nephropathy [Unknown]
  - Fluid overload [Unknown]
  - Dialysis [Not Recovered/Not Resolved]
  - Haemodialysis [Unknown]

NARRATIVE: CASE EVENT DATE: 2017
